FAERS Safety Report 6670355-6 (Version None)
Quarter: 2010Q2

REPORT INFORMATION
  Report Type: 
  Country: None (occurrence: None)
  Receive Date: 20100405
  Receipt Date: 20100329
  Transmission Date: 20101027
  Serious: Yes (Hospitalization)
  Sender: FDA-Public Use
  Company Number: 1000012816

PATIENT
  Age: 76 Year
  Sex: Female

DRUGS (1)
  1. LEXAPRO [Suspect]
     Dosage: ORAL
     Route: 048

REACTIONS (1)
  - ENCEPHALOPATHY [None]
